APPROVED DRUG PRODUCT: EFAVIRENZ
Active Ingredient: EFAVIRENZ
Strength: 100MG
Dosage Form/Route: CAPSULE;ORAL
Application: A078064 | Product #002
Applicant: AUROBINDO PHARMA LTD
Approved: Dec 15, 2017 | RLD: No | RS: No | Type: RX